FAERS Safety Report 19618028 (Version 1)
Quarter: 2021Q3

REPORT INFORMATION
  Report Type: Spontaneous
  Country: None (occurrence: CN)
  Receive Date: 20210728
  Receipt Date: 20210728
  Transmission Date: 20211014
  Serious: Yes (Other)
  Sender: FDA-Public Use
  Company Number: CN-CHEPLA-2021000646

PATIENT
  Age: 39 Year
  Sex: Female

DRUGS (1)
  1. GANCICLOVIR. [Suspect]
     Active Substance: GANCICLOVIR
     Indication: HERPES ZOSTER
     Dosage: INTRAVITREAL GANCICLOVIR INJECTION 3 MG/0.1 ML, EVERY 2 WEEKS TO THE LEFT EYE
     Route: 047

REACTIONS (3)
  - Product use issue [Unknown]
  - Product use in unapproved indication [Unknown]
  - Retinal injury [Unknown]
